FAERS Safety Report 19267207 (Version 1)
Quarter: 2021Q2

REPORT INFORMATION
  Report Type: Spontaneous
  Country: US (occurrence: US)
  Receive Date: 20210517
  Receipt Date: 20210517
  Transmission Date: 20210717
  Serious: No
  Sender: FDA-Public Use
  Company Number: US-MYLANLABS-2021M1027199

PATIENT
  Sex: Female
  Weight: 82 kg

DRUGS (2)
  1. XULANE [Suspect]
     Active Substance: ETHINYL ESTRADIOL\NORELGESTROMIN
     Indication: CONTRACEPTION
     Dosage: APPROXIMATELY 5 YEARS AND HALF AGO
     Route: 062
  2. XULANE [Suspect]
     Active Substance: ETHINYL ESTRADIOL\NORELGESTROMIN
     Dosage: ONCE WEEKLY FOR 3 WEEKS AND THEN 1 WEEK OFF
     Route: 062
     Dates: start: 202102

REACTIONS (2)
  - Application site pruritus [Recovered/Resolved]
  - Product adhesion issue [Not Recovered/Not Resolved]
